FAERS Safety Report 24771279 (Version 1)
Quarter: 2024Q4

REPORT INFORMATION
  Report Type: Spontaneous
  Country: US (occurrence: US)
  Receive Date: 20241224
  Receipt Date: 20241224
  Transmission Date: 20250114
  Serious: No
  Sender: ENDO
  Company Number: US-ENDO USA, INC.-2024-003428

PATIENT
  Age: 52 Year
  Sex: Female

DRUGS (2)
  1. BISMUTH SUBCITRATE POTASSIUM, METRONIDAZOLE AND TETRACYCLINE HYDROCHLO [Suspect]
     Active Substance: BISMUTH SUBCITRATE POTASSIUM\METRONIDAZOLE\TETRACYCLINE HYDROCHLORIDE
     Indication: Helicobacter infection
     Dosage: UNK UNKNOWN, UNKNOWN
     Route: 065
  2. UNSPECIFIED INGREDIENT [Concomitant]
     Active Substance: UNSPECIFIED INGREDIENT
     Indication: Product used for unknown indication
     Dosage: UNK UNKNOWN, UNKNOWN (2 HOURS BEFORE OR 2 HOURS AFTER TAKING BISMUTH MEDICATION)
     Route: 065

REACTIONS (3)
  - Migraine [Not Recovered/Not Resolved]
  - Nausea [Not Recovered/Not Resolved]
  - Wrong technique in product usage process [Unknown]

NARRATIVE: CASE EVENT DATE: 20240907
